FAERS Safety Report 4945844-2 (Version None)
Quarter: 2006Q1

REPORT INFORMATION
  Report Type: 
  Country: None (occurrence: None)
  Receive Date: 20060117
  Receipt Date: 20050810
  Transmission Date: 20060701
  Serious: Yes (Hospitalization)
  Sender: FDA-Public Use
  Company Number: A03200502482

PATIENT
  Age: 52 Year
  Sex: Male
  Weight: 89.2 kg

DRUGS (3)
  1. PLAVIX [Suspect]
     Indication: MYOCARDIAL INFARCTION
     Dosage: ORAL
     Route: 048
     Dates: end: 20040701
  2. TENECTEPLASE - UNKNOWN - UNIT DOSE : UNKNOWN [Suspect]
     Indication: MYOCARDIAL INFARCTION
  3. HEPARIN - UNKNOWN - UNIT DOSE : UNKNOWN [Suspect]
     Indication: MYOCARDIAL INFARCTION

REACTIONS (2)
  - NEUTROPENIA [None]
  - THROMBOCYTOPENIA [None]
